FAERS Safety Report 11317443 (Version 2)
Quarter: 2015Q3

REPORT INFORMATION
  Report Type: Spontaneous
  Country: US (occurrence: US)
  Receive Date: 20150728
  Receipt Date: 20150813
  Transmission Date: 20151125
  Serious: Yes (Other)
  Sender: FDA-Public Use
  Company Number: US-SHIRE-US201508687

PATIENT
  Age: 53 Year
  Sex: Male
  Weight: 83.45 kg

DRUGS (4)
  1. UCERIS [Concomitant]
     Active Substance: BUDESONIDE
     Indication: COLITIS ULCERATIVE
     Dosage: 9 MG, 1X/DAY:QD, DAILY
     Route: 048
     Dates: start: 20150415, end: 20150629
  2. LIALDA [Suspect]
     Active Substance: MESALAMINE
     Indication: COLITIS ULCERATIVE
     Dosage: 3.6 G, 1X/DAY:QD, OR 4.8 G PER DAY
     Route: 048
     Dates: start: 20130528, end: 20150629
  3. LISINOPRIL. [Concomitant]
     Active Substance: LISINOPRIL
     Indication: HYPERTENSION
     Dosage: 10 MG, 1X/DAY:QD, DAILY
     Route: 048
     Dates: start: 20130310
  4. LIPITOR [Concomitant]
     Active Substance: ATORVASTATIN CALCIUM
     Indication: BLOOD CHOLESTEROL INCREASED
     Dosage: 40 MG, 1X/DAY:QD, DAILY
     Route: 048
     Dates: start: 20120212

REACTIONS (4)
  - Renal disorder [Recovered/Resolved with Sequelae]
  - Tubulointerstitial nephritis [Unknown]
  - Eosinophil count increased [Unknown]
  - Blood creatinine increased [Recovered/Resolved with Sequelae]

NARRATIVE: CASE EVENT DATE: 201506
